FAERS Safety Report 18779795 (Version 4)
Quarter: 2022Q1

REPORT INFORMATION
  Report Type: Spontaneous
  Country: CO (occurrence: CO)
  Receive Date: 20210125
  Receipt Date: 20220204
  Transmission Date: 20220424
  Serious: Yes (Other)
  Sender: FDA-Public Use
  Company Number: CO-AMGEN-COLSP2020209899

PATIENT
  Age: 28 Year
  Sex: Male
  Weight: 54 kg

DRUGS (11)
  1. MVASI [Suspect]
     Active Substance: BEVACIZUMAB-AWWB
     Indication: Anaplastic astrocytoma
     Dosage: 400 MILLIGRAM, QD
     Route: 042
     Dates: start: 20201210
  2. MVASI [Suspect]
     Active Substance: BEVACIZUMAB-AWWB
     Indication: Oligodendroglioma
     Dosage: 405 MILLIGRAM, QD
     Route: 042
     Dates: start: 20210115
  3. MVASI [Suspect]
     Active Substance: BEVACIZUMAB-AWWB
     Indication: Brain neoplasm malignant
     Dosage: 580 MILLIGRAM, Q2WK
     Route: 042
     Dates: start: 20210901
  4. MVASI [Suspect]
     Active Substance: BEVACIZUMAB-AWWB
     Indication: Off label use
  5. PHENYTOIN SODIUM [Concomitant]
     Active Substance: PHENYTOIN SODIUM
     Indication: Epilepsy
     Dosage: 100 MILLIGRAM, QD
     Route: 048
     Dates: start: 20201217
  6. LACOSAMIDE [Concomitant]
     Active Substance: LACOSAMIDE
     Indication: Epilepsy
     Dosage: 100 MILLIGRAM, Q12H
     Route: 048
     Dates: start: 20201217
  7. PREDNISOLONE [Concomitant]
     Active Substance: PREDNISOLONE
     Indication: Epilepsy
     Dosage: 5 MILLIGRAM, QD
     Route: 048
     Dates: start: 20201217
  8. PREDNISOLONE [Concomitant]
     Active Substance: PREDNISOLONE
     Dosage: 5 MILLIGRAM, QD
     Route: 048
     Dates: start: 20210115
  9. TEMOZOLOMIDE [Concomitant]
     Active Substance: TEMOZOLOMIDE
     Indication: Astrocytoma
     Dosage: 100 MILLIGRAM
     Route: 048
     Dates: start: 20210115
  10. TEMOZOLOMIDE [Concomitant]
     Active Substance: TEMOZOLOMIDE
     Dosage: 200 MILLIGRAM/SQ. METER, EVERY 28 DAYS
     Route: 048
     Dates: start: 20210714
  11. TEMOZOLOMIDE [Concomitant]
     Active Substance: TEMOZOLOMIDE
     Dosage: 140 MILLIGRAM
     Route: 048
     Dates: start: 20210714

REACTIONS (4)
  - Astrocytoma [Unknown]
  - Off label use [Not Recovered/Not Resolved]
  - Transaminases increased [Recovering/Resolving]
  - Pain in extremity [Recovering/Resolving]

NARRATIVE: CASE EVENT DATE: 20201218
